FAERS Safety Report 6818818-4 (Version None)
Quarter: 2010Q2

REPORT INFORMATION
  Report Type: 
  Country: None (occurrence: None)
  Receive Date: 20100630
  Receipt Date: 20100618
  Transmission Date: 20101027
  Serious: Yes (Other)
  Sender: FDA-Public Use
  Company Number: 201006IM001206

PATIENT
  Age: 67 Year
  Sex: Male

DRUGS (1)
  1. IMMUKIN [Suspect]
     Indication: IDIOPATHIC PULMONARY FIBROSIS
     Dosage: 50 UG/M2, THREE TIMES A WEEK, SUBCUTANEOUS
     Route: 058

REACTIONS (3)
  - FOCAL SEGMENTAL GLOMERULOSCLEROSIS [None]
  - HYPOALBUMINAEMIA [None]
  - RENAL FAILURE [None]
